FAERS Safety Report 7768422-9 (Version None)
Quarter: 2011Q3

REPORT INFORMATION
  Report Type: 
  Country: None (occurrence: None)
  Receive Date: 20110922
  Receipt Date: 20101011
  Transmission Date: 20111222
  Serious: No
  Sender: FDA-Public Use
  Company Number: US-ASTRAZENECA-2010SE47962

PATIENT
  Age: 49 Year
  Sex: Female
  Weight: 78.9 kg

DRUGS (8)
  1. SEROQUEL XR [Suspect]
     Route: 048
  2. SEROQUEL XR [Suspect]
     Indication: BIPOLAR DISORDER
     Route: 048
  3. SEROQUEL XR [Suspect]
     Route: 048
     Dates: start: 20100101
  4. SEROQUEL XR [Suspect]
     Indication: DEPRESSION
     Route: 048
  5. SEROQUEL XR [Suspect]
     Route: 048
  6. SEROQUEL XR [Suspect]
     Route: 048
  7. SEROQUEL XR [Suspect]
     Route: 048
  8. SEROQUEL XR [Suspect]
     Route: 048
     Dates: start: 20100101

REACTIONS (3)
  - DIZZINESS [None]
  - IMPAIRED WORK ABILITY [None]
  - FEELING DRUNK [None]
